FAERS Safety Report 4789813-4 (Version None)
Quarter: 2005Q4

REPORT INFORMATION
  Report Type: 
  Country: None (occurrence: None)
  Receive Date: 20051006
  Receipt Date: 20051001
  Transmission Date: 20060501
  Serious: Yes (Hospitalization)
  Sender: FDA-Public Use
  Company Number: L0505135

PATIENT
  Age: 68 Year
  Sex: Female

DRUGS (5)
  1. PREDNISOLONE [Suspect]
     Indication: ASTHMA
     Dosage: 20MG PER DAY
     Route: 065
  2. FLIXOTIDE [Suspect]
     Route: 065
  3. METFORMIN [Suspect]
     Route: 065
  4. MONTELUKAST [Suspect]
     Indication: ASTHMA
     Dosage: 10MG PER DAY
     Route: 065
  5. THEOPHYLLINE [Suspect]
     Route: 065

REACTIONS (5)
  - ABDOMINAL PAIN [None]
  - ABDOMINAL TENDERNESS [None]
  - PERITONITIS BACTERIAL [None]
  - PYREXIA [None]
  - WHITE BLOOD CELL COUNT INCREASED [None]
